FAERS Safety Report 8901530 (Version 1)
Quarter: 2012Q4

REPORT INFORMATION
  Report Type: 
  Country: US (occurrence: US)
  Receive Date: 20121109
  Receipt Date: 20121109
  Transmission Date: 20130627
  Serious: Yes (Other)
  Sender: FDA-Public Use
  Company Number: US-SANOFI-AVENTIS-2012SA080722

PATIENT
  Sex: Male

DRUGS (5)
  1. LANTUS SOLOSTAR [Suspect]
     Indication: TYPE II DIABETES MELLITUS
     Dosage: Dose:81 unit(s)
     Route: 058
  2. LANTUS SOLOSTAR [Suspect]
     Indication: TYPE II DIABETES MELLITUS
     Dosage: Dose:58 unit(s)
     Route: 058
  3. SOLOSTAR [Suspect]
     Indication: TYPE II DIABETES MELLITUS
  4. JANUVIA [Concomitant]
  5. METFORMIN [Concomitant]

REACTIONS (3)
  - Peripheral artery aneurysm [Unknown]
  - Weight decreased [Unknown]
  - Decreased appetite [Unknown]
